FAERS Safety Report 4474223-X (Version None)
Quarter: 2004Q4

REPORT INFORMATION
  Report Type: 
  Country: None (occurrence: None)
  Receive Date: 20041008
  Receipt Date: 20041005
  Transmission Date: 20050328
  Serious: Yes (Disabling)
  Sender: FDA-Public Use
  Company Number: HQWYE686103NOV03

PATIENT
  Age: 75 Year
  Sex: Male

DRUGS (8)
  1. DIMETAPP [Suspect]
     Indication: HYPERSENSITIVITY
     Dosage: AS DIRECTED ON PACKAGE, ORAL
     Route: 048
  2. DIMETAPP [Suspect]
     Indication: INFLUENZA
     Dosage: AS DIRECTED ON PACKAGE, ORAL
     Route: 048
  3. DIMETAPP [Suspect]
     Indication: NASOPHARYNGITIS
     Dosage: AS DIRECTED ON PACKAGE, ORAL
     Route: 048
  4. DIMETAPP [Suspect]
     Indication: SINUS DISORDER
     Dosage: AS DIRECTED ON PACKAGE, ORAL
     Route: 048
  5. ROBITUSSIN CF (GUAIFENESIN/DEXTROMETHORPHAN/PHENYLPROPANOLAMINE, SYRUP [Suspect]
     Indication: HYPERSENSITIVITY
     Dosage: AS DIRECTED ON THE PACKAGE, ORAL
     Route: 048
  6. ROBITUSSIN CF (GUAIFENESIN/DEXTROMETHORPHAN/PHENYLPROPANOLAMINE, SYRUP [Suspect]
     Indication: INFLUENZA
     Dosage: AS DIRECTED ON THE PACKAGE, ORAL
     Route: 048
  7. ROBITUSSIN CF (GUAIFENESIN/DEXTROMETHORPHAN/PHENYLPROPANOLAMINE, SYRUP [Suspect]
     Indication: NASOPHARYNGITIS
     Dosage: AS DIRECTED ON THE PACKAGE, ORAL
     Route: 048
  8. ROBITUSSIN CF (GUAIFENESIN/DEXTROMETHORPHAN/PHENYLPROPANOLAMINE, SYRUP [Suspect]
     Indication: SINUS DISORDER
     Dosage: AS DIRECTED ON THE PACKAGE, ORAL
     Route: 048

REACTIONS (1)
  - CEREBROVASCULAR ACCIDENT [None]
